FAERS Safety Report 4946500-7 (Version None)
Quarter: 2006Q1

REPORT INFORMATION
  Report Type: 
  Country: None (occurrence: None)
  Receive Date: 20060317
  Receipt Date: 20060314
  Transmission Date: 20060701
  Serious: Yes (Life-Threatening)
  Sender: FDA-Public Use
  Company Number: DE-JNJFOC-20060303584

PATIENT
  Age: 64 Year
  Sex: Male
  Weight: 83 kg

DRUGS (4)
  1. INFLIXIMAB [Suspect]
     Route: 042
  2. INFLIXIMAB [Suspect]
     Route: 042
  3. PROTAPHANE [Concomitant]
     Indication: DIABETES MELLITUS
     Route: 065
     Dates: start: 19780101
  4. ACTRAPHANE [Concomitant]
     Indication: DIABETES MELLITUS
     Route: 065
     Dates: start: 19780101

REACTIONS (4)
  - DYSPNOEA [None]
  - INFUSION RELATED REACTION [None]
  - LOSS OF CONSCIOUSNESS [None]
  - VOMITING [None]
